FAERS Safety Report 16365466 (Version 1)
Quarter: 2019Q2

REPORT INFORMATION
  Report Type: Spontaneous
  Country: JP (occurrence: JP)
  Receive Date: 20190529
  Receipt Date: 20190529
  Transmission Date: 20190711
  Serious: Yes (Hospitalization)
  Sender: FDA-Public Use
  Company Number: PHJP2019JP005874

PATIENT
  Age: 50 Year
  Sex: Male

DRUGS (1)
  1. TEGRETOL [Suspect]
     Active Substance: CARBAMAZEPINE
     Indication: CERVICAL RADICULOPATHY
     Dosage: UNK
     Route: 048

REACTIONS (2)
  - Drug reaction with eosinophilia and systemic symptoms [Unknown]
  - Off label use [Unknown]
